FAERS Safety Report 15170544 (Version 1)
Quarter: 2018Q3

REPORT INFORMATION
  Report Type: Spontaneous
  Country: US (occurrence: US)
  Receive Date: 20180720
  Receipt Date: 20180720
  Transmission Date: 20181010
  Serious: No
  Sender: FDA-Public Use
  Company Number: US-ELI_LILLY_AND_COMPANY-US201807009697

PATIENT
  Sex: Male

DRUGS (2)
  1. TALTZ [Suspect]
     Active Substance: IXEKIZUMAB
     Indication: PSORIATIC ARTHROPATHY
     Dosage: UNK, UNKNOWN
     Route: 065
     Dates: start: 20170428
  2. OTEZLA [Concomitant]
     Active Substance: APREMILAST
     Indication: PSORIATIC ARTHROPATHY
     Dosage: 30 MG, UNKNOWN
     Route: 048
     Dates: start: 20170519

REACTIONS (2)
  - Depression [Unknown]
  - Arthralgia [Recovered/Resolved]
